FAERS Safety Report 8593642-3 (Version None)
Quarter: 2012Q3

REPORT INFORMATION
  Report Type: 
  Country: None (occurrence: None)
  Receive Date: 20120814
  Receipt Date: 20120808
  Transmission Date: 20120928
  Serious: Yes (Other)
  Sender: FDA-Public Use
  Company Number: JP-VERTEX PHARMACEUTICALS INC.-AE-2012-004791

PATIENT
  Age: 47 Year
  Sex: Male

DRUGS (6)
  1. ALLOPURINOL [Concomitant]
  2. RIBAVIRIN [Concomitant]
     Route: 048
     Dates: start: 20120221, end: 20120313
  3. PEGINTERFERON ALFA-2A [Concomitant]
     Route: 058
     Dates: start: 20120221, end: 20120316
  4. TELAVIC [Suspect]
     Indication: HEPATITIS C
     Route: 048
     Dates: start: 20120221, end: 20120316
  5. RIBAVIRIN [Concomitant]
     Route: 048
     Dates: start: 20120313, end: 20120316
  6. LOXOPROFEN [Concomitant]

REACTIONS (1)
  - PSYCHIATRIC SYMPTOM [None]
